FAERS Safety Report 10167907 (Version 1)
Quarter: 2014Q2

REPORT INFORMATION
  Report Type: Spontaneous
  Country: JP (occurrence: JP)
  Receive Date: 20140512
  Receipt Date: 20140512
  Transmission Date: 20141212
  Serious: Yes (Hospitalization, Other)
  Sender: FDA-Public Use
  Company Number: JP-WATSON-2014-09728

PATIENT
  Age: 12 Year
  Sex: Female

DRUGS (1)
  1. VALPROIC ACID [Suspect]
     Indication: IDIOPATHIC GENERALISED EPILEPSY
     Dosage: 500 MG, DAILY (10 MG/KG DAILY)
     Route: 065

REACTIONS (1)
  - Tremor [Recovered/Resolved]
